FAERS Safety Report 7822292-9 (Version None)
Quarter: 2011Q4

REPORT INFORMATION
  Report Type: 
  Country: None (occurrence: None)
  Receive Date: 20111018
  Receipt Date: 20101201
  Transmission Date: 20120403
  Serious: Yes (Other)
  Sender: FDA-Public Use
  Company Number: US-ASTRAZENECA-2010SE50306

PATIENT
  Age: 32 Year
  Sex: Female
  Weight: 85.7 kg

DRUGS (3)
  1. SYMBICORT [Suspect]
     Indication: ASTHMA
     Dosage: 320 MCG TWO TIMES A DAY
     Route: 055
     Dates: start: 20101020
  2. LAMICTAL [Concomitant]
  3. ALBUTEROL [Concomitant]

REACTIONS (2)
  - CONVULSION [None]
  - DYSPNOEA AT REST [None]
